FAERS Safety Report 24129241 (Version 1)
Quarter: 2024Q3

REPORT INFORMATION
  Report Type: Other
  Country: CA (occurrence: CA)
  Receive Date: 20240723
  Receipt Date: 20240723
  Transmission Date: 20241017
  Serious: Yes (Other)
  Sender: TARO
  Company Number: CA-TARO PHARMACEUTICALS USA INC.-2024TAR01023

PATIENT

DRUGS (1)
  1. WARFARIN [Suspect]
     Active Substance: WARFARIN
     Indication: Product used for unknown indication
     Dosage: UNK
     Route: 065

REACTIONS (3)
  - Antiphospholipid syndrome [Recovering/Resolving]
  - International normalised ratio increased [Recovering/Resolving]
  - Thrombosis [Recovering/Resolving]
